FAERS Safety Report 4768816-X (Version None)
Quarter: 2005Q3

REPORT INFORMATION
  Report Type: 
  Country: None (occurrence: None)
  Receive Date: 20050914
  Receipt Date: 20030902
  Transmission Date: 20060218
  Serious: Yes (Hospitalization)
  Sender: FDA-Public Use
  Company Number: US-AMGEN-US046549

PATIENT
  Sex: Female

DRUGS (4)
  1. ENBREL [Suspect]
     Indication: RHEUMATOID ARTHRITIS
     Route: 058
     Dates: start: 20021224, end: 20030705
  2. METHOTREXATE [Concomitant]
     Dates: end: 20030601
  3. PLAQUENIL [Concomitant]
     Dates: end: 20030601
  4. FENTANYL [Concomitant]
     Route: 062
     Dates: end: 20030601

REACTIONS (6)
  - CONDITION AGGRAVATED [None]
  - DISEASE PROGRESSION [None]
  - HEPATITIS B [None]
  - PANIC ATTACK [None]
  - RHEUMATOID ARTHRITIS [None]
  - SINUSITIS [None]
